FAERS Safety Report 6858415-8 (Version None)
Quarter: 2010Q3

REPORT INFORMATION
  Report Type: 
  Country: None (occurrence: None)
  Receive Date: 20100719
  Receipt Date: 20080204
  Transmission Date: 20110219
  Serious: No
  Sender: FDA-Public Use
  Company Number: US-PFIZER INC-2008013088

PATIENT
  Sex: Female

DRUGS (5)
  1. CHANTIX [Suspect]
     Indication: SMOKING CESSATION THERAPY
     Dates: start: 20070101
  2. ACIPHEX [Concomitant]
  3. LISINOPRIL [Concomitant]
  4. CYMBALTA [Concomitant]
  5. LIPITOR [Concomitant]

REACTIONS (1)
  - ABDOMINAL PAIN UPPER [None]
